FAERS Safety Report 6130849-9 (Version None)
Quarter: 2009Q1

REPORT INFORMATION
  Report Type: 
  Country: None (occurrence: None)
  Receive Date: 20090325
  Receipt Date: 20090310
  Transmission Date: 20090719
  Serious: Yes (Other)
  Sender: FDA-Public Use
  Company Number: US-PFIZER INC-2006063331

PATIENT
  Sex: Female
  Weight: 73 kg

DRUGS (7)
  1. PROVERA [Suspect]
     Indication: HORMONE REPLACEMENT THERAPY
     Dosage: 10 MG, UNK
     Route: 048
     Dates: start: 19930101, end: 19980101
  2. PROVERA [Suspect]
     Indication: MENSTRUATION IRREGULAR
  3. PREMPRO [Suspect]
     Indication: HORMONE REPLACEMENT THERAPY
     Dosage: UNK
     Dates: start: 19981020, end: 19990401
  4. PREMPRO [Suspect]
     Indication: MENOPAUSAL SYMPTOMS
  5. PREMPHASE 14/14 [Suspect]
     Indication: HORMONE REPLACEMENT THERAPY
     Dosage: UNK
     Dates: start: 19990401, end: 20020701
  6. PREMPHASE 14/14 [Suspect]
     Indication: MENOPAUSAL SYMPTOMS
  7. PROTONIX [Concomitant]
     Indication: GASTROOESOPHAGEAL REFLUX DISEASE
     Dosage: UNK

REACTIONS (1)
  - NON-HODGKIN'S LYMPHOMA [None]
